FAERS Safety Report 24405617 (Version 1)
Quarter: 2024Q4

REPORT INFORMATION
  Report Type: Spontaneous
  Country: CN (occurrence: CN)
  Receive Date: 20241007
  Receipt Date: 20241007
  Transmission Date: 20250115
  Serious: Yes (Hospitalization)
  Sender: FRESENIUS KABI
  Company Number: CN-FreseniusKabi-FK202414553

PATIENT
  Age: 3 Day
  Sex: Female

DRUGS (2)
  1. INTRALIPID [Suspect]
     Active Substance: EGG PHOSPHOLIPIDS\GLYCERIN\SOYBEAN OIL
     Indication: Parenteral nutrition
     Dosage: FORM OF ADMIN: INJECTION
     Route: 041
     Dates: start: 20240619, end: 20240816
  2. Pediatric Compound Amino Acid Injection (18AA-I) [Concomitant]
     Indication: Parenteral nutrition
     Dosage: FOA: INJECTION
     Route: 041
     Dates: start: 20240616, end: 20240822

REACTIONS (1)
  - Jaundice neonatal [Recovering/Resolving]

NARRATIVE: CASE EVENT DATE: 20240717
